FAERS Safety Report 18374197 (Version 1)
Quarter: 2020Q4

REPORT INFORMATION
  Report Type: Spontaneous
  Country: NL (occurrence: NL)
  Receive Date: 20201012
  Receipt Date: 20201012
  Transmission Date: 20210114
  Serious: Yes (Life-Threatening, Hospitalization)
  Sender: FDA-Public Use
  Company Number: NL-TEVA-2020-NL-1836442

PATIENT
  Age: 38 Year
  Sex: Male

DRUGS (5)
  1. AMOXICILLINE DISPERTABLET  500MG / BRAND NAME NOT SPECIFIED [Concomitant]
     Dosage: TABLET, 500 MG (MILLIGRAM),THERAPY START DATE AND END DATE: ASKED BUT UNKNOWN
  2. TRAMADOL CAPSULE 50MG / BRAND NAME NOT SPECIFIED [Concomitant]
     Dosage: CAPSULE, 50 MG (MILLIGRAM),THERAPY START DATE AND END DATE: ASKED BUT UNKNOWN
  3. DIAZEPAM TABLET  5MG / BRAND NAME NOT SPECIFIED [Concomitant]
     Dosage: TABLET, 5 MG (MILLIGRAM),THERAPY START DATE AND END DATE: ASKED BUT UNKNOWN
  4. OMEPRAZOL / BRAND NAME NOT SPECIFIED [Concomitant]
     Dosage: THERAPY START DATE AND END DATE: ASKED BUT UNKNOWN
  5. CARBAMAZEPINE TABLET 200MG / BRAND NAME NOT SPECIFIED [Suspect]
     Active Substance: CARBAMAZEPINE
     Indication: TRIGEMINAL NEURALGIA
     Dosage: 400 MILLIGRAM DAILY; 2X A DAY 1 PIECE, 200MG
     Route: 065
     Dates: start: 20200805, end: 20200814

REACTIONS (2)
  - Sepsis [Unknown]
  - Toxic epidermal necrolysis [Recovering/Resolving]

NARRATIVE: CASE EVENT DATE: 20200814
